FAERS Safety Report 7506888-X (Version None)
Quarter: 2011Q2

REPORT INFORMATION
  Report Type: 
  Country: None (occurrence: None)
  Receive Date: 20110415
  Receipt Date: 20100506
  Transmission Date: 20111010
  Serious: Yes (Hospitalization)
  Sender: FDA-Public Use
  Company Number: 10-000687

PATIENT
  Age: 21 Year
  Sex: Female
  Weight: 77.1 kg

DRUGS (1)
  1. LOESTRIN 24 FE [Suspect]
     Indication: CONTRACEPTION
     Dosage: 20/1000 UG TABLET, QD, ORAL
     Route: 048
     Dates: start: 20100202, end: 20100501

REACTIONS (1)
  - PULMONARY EMBOLISM [None]
